FAERS Safety Report 19832038 (Version 3)
Quarter: 2021Q4

REPORT INFORMATION
  Report Type: Spontaneous
  Country: FR (occurrence: FR)
  Receive Date: 20210915
  Receipt Date: 20211004
  Transmission Date: 20220303
  Serious: Yes (Other)
  Sender: FDA-Public Use
  Company Number: FR-AMGEN-FRASP2021139082

PATIENT
  Age: 80 Year
  Sex: Female

DRUGS (1)
  1. PROLIA [Suspect]
     Active Substance: DENOSUMAB
     Indication: Osteoporosis postmenopausal
     Dosage: 60 MILLIGRAM, Q6MO
     Route: 065
     Dates: start: 201606, end: 201812

REACTIONS (5)
  - Pelvic fracture [Unknown]
  - Thoracic vertebral fracture [Unknown]
  - Osteonecrosis of jaw [Unknown]
  - Wisdom teeth removal [Unknown]
  - Bone disorder [Unknown]

NARRATIVE: CASE EVENT DATE: 20160101
